FAERS Safety Report 9786441 (Version 1)
Quarter: 2013Q4

REPORT INFORMATION
  Report Type: Spontaneous
  Country: US (occurrence: None)
  Receive Date: 20131226
  Receipt Date: 20131226
  Transmission Date: 20140711
  Serious: Yes (Death, Hospitalization)
  Sender: FDA-Public Use
  Company Number: AMAG201300241

PATIENT
  Age: 72 Year
  Sex: Male
  Weight: 84.4 kg

DRUGS (8)
  1. FERAHEME [Suspect]
     Indication: IRON DEFICIENCY ANAEMIA
     Dosage: SINGLE, PUSH
     Route: 042
     Dates: start: 20131101, end: 20131101
  2. AMLODIPINE [Concomitant]
  3. ATORVASTATIN [Concomitant]
  4. CARVEDILOL [Concomitant]
  5. SOLUCORTEF [Concomitant]
  6. BENADRYL [Concomitant]
  7. PEPCID [Concomitant]
  8. TYLENOL [Concomitant]

REACTIONS (4)
  - Pulmonary embolism [None]
  - Cardiac arrest [None]
  - Respiratory failure [None]
  - Unresponsive to stimuli [None]
